FAERS Safety Report 4335714-5 (Version None)
Quarter: 2004Q2

REPORT INFORMATION
  Report Type: 
  Country: None (occurrence: None)
  Receive Date: 20040406
  Receipt Date: 20040322
  Transmission Date: 20050107
  Serious: Yes (Other)
  Sender: FDA-Public Use
  Company Number: 04-093-0806

PATIENT
  Sex: Female

DRUGS (1)
  1. PAPAVERINE HCL INJ., USP, 300MG, BEN VENUE LABS [Suspect]
     Indication: CEREBROVASCULAR SPASM
     Dates: start: 20040319

REACTIONS (5)
  - ANEURYSM [None]
  - INTRAOCULAR PRESSURE INCREASED [None]
  - RETINAL ARTERY OCCLUSION [None]
  - SUBARACHNOID HAEMORRHAGE [None]
  - SWELLING [None]
